FAERS Safety Report 17623296 (Version 3)
Quarter: 2021Q2

REPORT INFORMATION
  Report Type: Report from Study
  Country: FR (occurrence: FR)
  Receive Date: 20200403
  Receipt Date: 20210409
  Transmission Date: 20210716
  Serious: Yes (Other)
  Sender: FDA-Public Use
  Company Number: FR-JAZZ-2020-FR-004462

PATIENT
  Age: 64 Year
  Sex: Male
  Weight: 71 kg

DRUGS (1)
  1. DEFITELIO [Suspect]
     Active Substance: DEFIBROTIDE SODIUM
     Indication: VENOOCCLUSIVE LIVER DISEASE
     Dosage: 25 MILLIGRAM/KILOGRAM, QD
     Route: 042
     Dates: start: 20190902, end: 20190918

REACTIONS (8)
  - Graft versus host disease [Unknown]
  - Toxoplasmosis [Unknown]
  - Cerebral toxoplasmosis [Unknown]
  - Nervous system disorder [Unknown]
  - Haemophagocytic lymphohistiocytosis [Unknown]
  - Clostridium difficile colitis [Unknown]
  - Colitis [Unknown]
  - Drug ineffective [Unknown]

NARRATIVE: CASE EVENT DATE: 20190902
